FAERS Safety Report 25410868 (Version 1)
Quarter: 2025Q2

REPORT INFORMATION
  Report Type: Report from Study
  Country: CA (occurrence: CA)
  Receive Date: 20250609
  Receipt Date: 20250609
  Transmission Date: 20250716
  Serious: Yes (Hospitalization, Other)
  Sender: AMGEN
  Company Number: CA-BEH-2025206497

PATIENT
  Age: 83 Year
  Sex: Female

DRUGS (1)
  1. AVACOPAN [Suspect]
     Active Substance: AVACOPAN
     Indication: Anti-neutrophil cytoplasmic antibody positive vasculitis
     Dosage: 30 MG, BID
     Route: 048
     Dates: start: 20250408, end: 202505

REACTIONS (3)
  - Rash [Unknown]
  - Hospitalisation [Unknown]
  - Renal impairment [Unknown]

NARRATIVE: CASE EVENT DATE: 20250520
